FAERS Safety Report 10655123 (Version 1)
Quarter: 2014Q4

REPORT INFORMATION
  Report Type: Spontaneous
  Country: IN (occurrence: None)
  Receive Date: 20141212
  Receipt Date: 20141212
  Transmission Date: 20150529
  Serious: Yes (Other)
  Sender: FDA-Public Use
  Company Number: 2014RR-88541

PATIENT
  Age: 64 Year
  Sex: Male

DRUGS (6)
  1. DILTIAZEM [Suspect]
     Active Substance: DILTIAZEM
     Indication: CORONARY ARTERY DISEASE
  2. ATORVASTATIN [Suspect]
     Active Substance: ATORVASTATIN
     Indication: CORONARY ARTERY DISEASE
  3. ATENOLOL. [Suspect]
     Active Substance: ATENOLOL
     Indication: CORONARY ARTERY DISEASE
  4. CLOPIDOGREL [Suspect]
     Active Substance: CLOPIDOGREL BISULFATE
     Indication: CORONARY ARTERY DISEASE
  5. ASPIRIN. [Suspect]
     Active Substance: ASPIRIN
     Indication: CORONARY ARTERY DISEASE
  6. CLOPIDOGREL [Suspect]
     Active Substance: CLOPIDOGREL BISULFATE
     Indication: ALLERGY TEST

REACTIONS (4)
  - Skin lesion [None]
  - Pustular psoriasis [None]
  - Vomiting [None]
  - Retching [None]
